FAERS Safety Report 7879750-0 (Version None)
Quarter: 2011Q4

REPORT INFORMATION
  Report Type: 
  Country: None (occurrence: None)
  Receive Date: 20111101
  Receipt Date: 20111026
  Transmission Date: 20120403
  Serious: Yes (Other)
  Sender: FDA-Public Use
  Company Number: VE-ELI_LILLY_AND_COMPANY-VE201110007302

PATIENT
  Age: 58 Year
  Sex: Female

DRUGS (4)
  1. BYETTA [Suspect]
     Dosage: 5 UG, BID
     Dates: start: 20110924
  2. BYETTA [Suspect]
     Dosage: 10 UG, BID
     Dates: start: 20111001
  3. BYETTA [Suspect]
     Dosage: 5 UG, BID
  4. AMARYL [Concomitant]
     Dosage: 4 MG, BID

REACTIONS (4)
  - VOMITING [None]
  - DISCOMFORT [None]
  - SYNCOPE [None]
  - NAUSEA [None]
